FAERS Safety Report 4960914-0 (Version None)
Quarter: 2006Q2

REPORT INFORMATION
  Report Type: 
  Country: None (occurrence: None)
  Receive Date: 20060403
  Receipt Date: 20040818
  Transmission Date: 20061013
  Serious: Yes (Death, Hospitalization, Other)
  Sender: FDA-Public Use
  Company Number: JP-BRISTOL-MYERS SQUIBB COMPANY-12676359

PATIENT
  Age: 55 Year
  Sex: Female

DRUGS (9)
  1. STOCRIN CAPS [Suspect]
     Indication: HIV INFECTION
     Route: 048
     Dates: start: 20040205, end: 20040326
  2. VIDEX EC [Suspect]
     Indication: HIV INFECTION
     Route: 048
     Dates: start: 20040205, end: 20040329
  3. EPIVIR [Suspect]
     Indication: HIV INFECTION
     Dates: start: 20040101
  4. RETROVIR [Suspect]
     Indication: HIV INFECTION
     Route: 048
     Dates: start: 20040205, end: 20040329
  5. ZIAGEN [Suspect]
     Indication: HIV INFECTION
     Route: 048
     Dates: start: 20040327, end: 20040329
  6. COMBIVIR [Concomitant]
     Indication: HIV INFECTION
     Route: 048
     Dates: start: 20040204, end: 20040101
  7. ADRENAL CORTICAL EXTRACT [Concomitant]
  8. SULFAMETHOXAZOLE + TRIMETHOPRIM [Concomitant]
  9. PENTAMIDINE ISETHIONATE [Concomitant]
     Dates: start: 20040317, end: 20040317

REACTIONS (4)
  - ASCITES [None]
  - HEPATIC ENCEPHALOPATHY [None]
  - HEPATITIS FULMINANT [None]
  - IMMUNE RECONSTITUTION SYNDROME [None]
